FAERS Safety Report 6054556-6 (Version None)
Quarter: 2009Q1

REPORT INFORMATION
  Report Type: 
  Country: None (occurrence: None)
  Receive Date: 20090127
  Receipt Date: 20090122
  Transmission Date: 20090719
  Serious: Yes (Other)
  Sender: FDA-Public Use
  Company Number: PHBS2009IT00589

PATIENT
  Age: 46 Year
  Sex: Female
  Weight: 88.4 kg

DRUGS (3)
  1. OXCARBAZEPINE [Suspect]
     Indication: BINGE EATING
     Dosage: 1200 MG/DAY
  2. OXCARBAZEPINE [Suspect]
     Dosage: UNK
  3. COFFEE [Suspect]

REACTIONS (9)
  - APATHY [None]
  - CRYING [None]
  - DEPRESSED MOOD [None]
  - DEPRESSION [None]
  - MUSCLE SPASMS [None]
  - NAUSEA [None]
  - PARAESTHESIA [None]
  - SOMNOLENCE [None]
  - WEIGHT INCREASED [None]
